FAERS Safety Report 11063760 (Version 1)
Quarter: 2015Q2

REPORT INFORMATION
  Report Type: Spontaneous
  Country: US (occurrence: US)
  Receive Date: 20150424
  Receipt Date: 20150424
  Transmission Date: 20150821
  Serious: No
  Sender: FDA-Public Use
  Company Number: US-ALKERMES INC.-ALK-2014-003926

PATIENT

DRUGS (3)
  1. VIVITROL [Suspect]
     Active Substance: NALTREXONE
     Indication: ALCOHOLISM
     Dosage: 380 MG, QMO
     Route: 030
     Dates: start: 201401, end: 201406
  2. RISPERDAL [Concomitant]
     Active Substance: RISPERIDONE
     Indication: PRODUCT USED FOR UNKNOWN INDICATION
     Dosage: UNK
     Dates: start: 2014
  3. VIVITROL [Suspect]
     Active Substance: NALTREXONE
     Dosage: UNK
     Dates: start: 201409

REACTIONS (16)
  - Injection site reaction [Recovered/Resolved]
  - Alcoholism [Recovered/Resolved]
  - Insomnia [Recovered/Resolved]
  - Withdrawal syndrome [Recovered/Resolved]
  - Abdominal pain [Not Recovered/Not Resolved]
  - Muscle spasms [Not Recovered/Not Resolved]
  - Weight decreased [Not Recovered/Not Resolved]
  - Panic attack [Recovered/Resolved]
  - Agitation [Recovered/Resolved]
  - Injection site pain [Recovered/Resolved]
  - Anxiety [Recovered/Resolved]
  - Depression [Not Recovered/Not Resolved]
  - Libido decreased [Recovered/Resolved]
  - Decreased appetite [Not Recovered/Not Resolved]
  - Bedridden [Not Recovered/Not Resolved]
  - Dysphoria [Recovered/Resolved]

NARRATIVE: CASE EVENT DATE: 201401
